FAERS Safety Report 7151509-1 (Version None)
Quarter: 2010Q4

REPORT INFORMATION
  Report Type: 
  Country: None (occurrence: None)
  Receive Date: 20101210
  Receipt Date: 20101201
  Transmission Date: 20110411
  Serious: Yes (Other)
  Sender: FDA-Public Use
  Company Number: GB-TEVA-258935ISR

PATIENT
  Age: 13 Year
  Sex: Male
  Weight: 31.2 kg

DRUGS (5)
  1. RISPERIDONE [Suspect]
     Indication: ATTENTION DEFICIT/HYPERACTIVITY DISORDER
     Route: 048
     Dates: start: 20060601
  2. METHYLPHENIDATE HCL [Suspect]
     Indication: ATTENTION DEFICIT/HYPERACTIVITY DISORDER
     Route: 048
  3. METHYLPHENIDATE HCL [Suspect]
     Indication: AUTISM
  4. PREDNISOLONE ACETATE [Suspect]
  5. RIMEXOLONE [Suspect]

REACTIONS (2)
  - BENIGN INTRACRANIAL HYPERTENSION [None]
  - EYE SWELLING [None]
